FAERS Safety Report 7990937-9 (Version None)
Quarter: 2011Q4

REPORT INFORMATION
  Report Type: 
  Country: None (occurrence: None)
  Receive Date: 20111215
  Receipt Date: 20111129
  Transmission Date: 20120403
  Serious: Yes (Other)
  Sender: FDA-Public Use
  Company Number: 2011AP002911

PATIENT
  Age: 79 Year
  Sex: Female

DRUGS (1)
  1. CLARITHROMYCIN [Suspect]
     Indication: PRODUCT USED FOR UNKNOWN INDICATION
     Dosage: 1000 MG; QD

REACTIONS (8)
  - VOMITING [None]
  - HEPATOMEGALY [None]
  - HEPATOTOXICITY [None]
  - ASTHENIA [None]
  - PRURITUS [None]
  - NAUSEA [None]
  - JAUNDICE [None]
  - DECREASED APPETITE [None]
